FAERS Safety Report 5917778-8 (Version None)
Quarter: 2008Q4

REPORT INFORMATION
  Report Type: 
  Country: None (occurrence: None)
  Receive Date: 20081014
  Receipt Date: 20080912
  Transmission Date: 20090506
  Serious: No
  Sender: FDA-Public Use
  Company Number: US-BAYER-200833919NA

PATIENT

DRUGS (1)
  1. MAGNEVIST [Suspect]
     Dosage: AS USED: 15 ML

REACTIONS (1)
  - CONTRAST MEDIA REACTION [None]
